FAERS Safety Report 12979689 (Version 1)
Quarter: 2016Q4

REPORT INFORMATION
  Report Type: Report from Study
  Country: NL (occurrence: NL)
  Receive Date: 20161128
  Receipt Date: 20161128
  Transmission Date: 20170207
  Serious: Yes (Death, Other)
  Sender: FDA-Public Use
  Company Number: NL-PFIZER INC-2016546841

PATIENT

DRUGS (3)
  1. CAPECITABINE. [Suspect]
     Active Substance: CAPECITABINE
     Indication: GASTRIC CANCER
     Dosage: 1.875 MG/M2, CYCLIC (ON DAYS 1-14 )
     Route: 048
  2. DOCETAXEL. [Suspect]
     Active Substance: DOCETAXEL
     Indication: GASTRIC CANCER
     Dosage: 60 MG/M2, CYCLIC (ON DAY 1)
     Route: 042
  3. CISPLATIN. [Suspect]
     Active Substance: CISPLATIN
     Indication: GASTRIC CANCER
     Dosage: 60 MG/M2, CYCLIC (ON DAY 1)
     Route: 042

REACTIONS (2)
  - Infection [Fatal]
  - Neutropenia [Unknown]
